FAERS Safety Report 13805441 (Version 1)
Quarter: 2017Q3

REPORT INFORMATION
  Report Type: Spontaneous
  Country: US (occurrence: US)
  Receive Date: 20170728
  Receipt Date: 20170728
  Transmission Date: 20171127
  Serious: No
  Sender: FDA-Public Use
  Company Number: US-STRIDES ARCOLAB LIMITED-2016SP006028

PATIENT

DRUGS (7)
  1. PRENATAL VITAMINS                  /02014401/ [Concomitant]
     Active Substance: VITAMINS
     Indication: PREGNANCY
     Dosage: 1 DF, DAILY
     Dates: start: 201605
  2. MYCOPHENOLATE MOFETIL. [Suspect]
     Active Substance: MYCOPHENOLATE MOFETIL
     Indication: LUPUS NEPHRITIS
     Dosage: 1500 MG, BID
     Route: 048
     Dates: start: 20150720, end: 20160506
  3. AZATHIOPRINE. [Suspect]
     Active Substance: AZATHIOPRINE
     Indication: LUPUS NEPHRITIS
     Dosage: 75 MG, DAILY
     Dates: start: 20160602
  4. HYDROXYCHLOROQUINE SULFATE. [Suspect]
     Active Substance: HYDROXYCHLOROQUINE SULFATE
     Indication: LUPUS NEPHRITIS
     Dosage: 200 MG, UNK
     Dates: start: 201507
  5. PYRIDOXINE [Concomitant]
     Active Substance: PYRIDOXINE
     Indication: NAUSEA
     Dosage: 10 MG, 2 TABLETS IN THE EVENING
     Dates: start: 20160602
  6. PREDNISOLONE. [Suspect]
     Active Substance: PREDNISOLONE
     Indication: LUPUS NEPHRITIS
     Dosage: 15 MG, DAILY
     Dates: start: 201507
  7. DOXYLAMINE [Concomitant]
     Active Substance: DOXYLAMINE
     Indication: NAUSEA
     Dosage: 10 MG, 2 TABLETS IN THE EVENING
     Dates: start: 20160602

REACTIONS (2)
  - Exposure during pregnancy [Unknown]
  - Off label use [Unknown]
